FAERS Safety Report 21803233 (Version 1)
Quarter: 2023Q1

REPORT INFORMATION
  Report Type: Report from Study
  Country: US (occurrence: US)
  Receive Date: 20230101
  Receipt Date: 20230101
  Transmission Date: 20230418
  Serious: No
  Sender: FDA-Public Use
  Company Number: US-ABBVIE-4220954

PATIENT
  Sex: Female

DRUGS (1)
  1. HUMIRA [Suspect]
     Active Substance: ADALIMUMAB
     Indication: Colitis ulcerative
     Dosage: CF FORM STRENGTH- 40 MG
     Route: 058

REACTIONS (2)
  - Mineral supplementation [Recovered/Resolved]
  - Mineral supplementation [Unknown]

NARRATIVE: CASE EVENT DATE: 20210101
